FAERS Safety Report 8602288-X (Version None)
Quarter: 2012Q3

REPORT INFORMATION
  Report Type: 
  Country: None (occurrence: None)
  Receive Date: 20120817
  Receipt Date: 20120815
  Transmission Date: 20120928
  Serious: Yes (Other)
  Sender: FDA-Public Use
  Company Number: CA-ROCHE-1102730

PATIENT
  Sex: Female

DRUGS (3)
  1. METOPROLOL TARTRATE [Concomitant]
  2. PEGASYS [Suspect]
     Indication: HEPATITIS C
     Route: 058
     Dates: start: 20120724
  3. COPEGUS [Suspect]
     Indication: HEPATITIS C
     Dosage: 400 MG EVERY MORNING AND 600 MG EVERY EVENING
     Route: 048

REACTIONS (1)
  - EPISTAXIS [None]
